FAERS Safety Report 7477717-8 (Version None)
Quarter: 2011Q2

REPORT INFORMATION
  Report Type: 
  Country: None (occurrence: None)
  Receive Date: 20110505
  Receipt Date: 20110429
  Transmission Date: 20111010
  Serious: Yes (Other)
  Sender: FDA-Public Use
  Company Number: 110051

PATIENT
  Age: 70 Year
  Sex: Female
  Weight: 86.1834 kg

DRUGS (7)
  1. LISINOPRIL/HCTXZ [Concomitant]
  2. PREVASTATIN [Concomitant]
  3. HALFLYTELY [Suspect]
     Indication: COLONOSCOPY
     Dosage: 10MG/2L/1X/PO
     Route: 048
     Dates: start: 20110214
  4. ATENOLOL [Concomitant]
  5. SYNTHROID [Concomitant]
  6. PROPAFENONE HCL [Concomitant]
  7. OXYBUTYNIN [Concomitant]

REACTIONS (5)
  - LOSS OF CONSCIOUSNESS [None]
  - NAUSEA [None]
  - ABDOMINAL PAIN [None]
  - COLITIS ISCHAEMIC [None]
  - HAEMATOCHEZIA [None]
